FAERS Safety Report 7052323-8 (Version None)
Quarter: 2010Q4

REPORT INFORMATION
  Report Type: 
  Country: None (occurrence: None)
  Receive Date: 20101014
  Receipt Date: 20101004
  Transmission Date: 20110411
  Serious: Yes (Hospitalization, Other)
  Sender: FDA-Public Use
  Company Number: 019463

PATIENT
  Age: 74 Year
  Sex: Male
  Weight: 89.3 kg

DRUGS (11)
  1. KEPPRA [Suspect]
     Indication: CONVULSION
     Dates: start: 20100501, end: 20100501
  2. REVATIO [Suspect]
     Indication: ESSENTIAL HYPERTENSION
     Dosage: 20 MG TID ORAL
     Route: 048
     Dates: start: 20070101, end: 20100418
  3. REVATIO [Suspect]
     Indication: ESSENTIAL HYPERTENSION
     Dosage: 20 MG TID ORAL
     Route: 048
     Dates: start: 20100101, end: 20100606
  4. DILANTIN [Suspect]
     Indication: CONVULSION
     Dates: start: 20100101
  5. COREG [Suspect]
     Indication: CARDIAC DISORDER
     Dosage: 6.25 MG BID ORAL
     Route: 048
  6. BUMETANIDE [Concomitant]
  7. PREDNISOLONE [Concomitant]
  8. SPIRONOLACTONE [Concomitant]
  9. SYNTHROID [Concomitant]
  10. WARFARIN [Concomitant]
  11. ARANESP [Concomitant]

REACTIONS (11)
  - ASTHENIA [None]
  - CONVULSION [None]
  - DYSPNOEA [None]
  - FATIGUE [None]
  - FEELING ABNORMAL [None]
  - FLUSHING [None]
  - GAIT DISTURBANCE [None]
  - HAEMOGLOBIN DECREASED [None]
  - HEART RATE IRREGULAR [None]
  - HYPOACUSIS [None]
  - OVERDOSE [None]
